FAERS Safety Report 18052668 (Version 6)
Quarter: 2021Q1

REPORT INFORMATION
  Report Type: Report from Study
  Country: US (occurrence: US)
  Receive Date: 20200721
  Receipt Date: 20210319
  Transmission Date: 20210419
  Serious: No
  Sender: FDA-Public Use
  Company Number: NVSC2020US201407

PATIENT
  Sex: Female

DRUGS (2)
  1. COSENTYX [Suspect]
     Active Substance: SECUKINUMAB
     Indication: PSORIASIS
     Dosage: 300 MG, QW (WEEK 0, 1, 2, 3 AND 4 AND THEN ONCE EVERY 4 WEEKS)
     Route: 058
  2. COSENTYX [Suspect]
     Active Substance: SECUKINUMAB
     Dosage: 300 MG, QMO
     Route: 058
     Dates: start: 20200617

REACTIONS (5)
  - Joint swelling [Unknown]
  - Eye pruritus [Not Recovered/Not Resolved]
  - Gastrointestinal disorder [Unknown]
  - Eye irritation [Unknown]
  - Muscle strain [Unknown]
